FAERS Safety Report 6655475-4 (Version None)
Quarter: 2010Q1

REPORT INFORMATION
  Report Type: 
  Country: None (occurrence: None)
  Receive Date: 20100329
  Receipt Date: 20100316
  Transmission Date: 20100710
  Serious: No
  Sender: FDA-Public Use
  Company Number: US-B.I. PHARMACEUTICALS,INC./RIDGEFIELD-2010-BP-02280BP

PATIENT
  Sex: Female

DRUGS (4)
  1. SPIRIVA [Suspect]
     Indication: CHRONIC OBSTRUCTIVE PULMONARY DISEASE
     Dosage: 18 MCG
     Route: 055
     Dates: start: 20050101
  2. SPIRIVA [Suspect]
     Indication: ASTHMA
  3. VITAMIN-MINERAL COMPOUND TAB [Concomitant]
     Indication: MACULAR DEGENERATION
  4. COZAAR [Concomitant]
     Indication: HYPERTENSION

REACTIONS (1)
  - MACULAR DEGENERATION [None]
